FAERS Safety Report 6446494-1 (Version None)
Quarter: 2009Q4

REPORT INFORMATION
  Report Type: 
  Country: None (occurrence: None)
  Receive Date: 20091116
  Receipt Date: 20091103
  Transmission Date: 20100525
  Serious: Yes (Hospitalization)
  Sender: FDA-Public Use
  Company Number: 20090506

PATIENT
  Age: 71 Year
  Sex: Male

DRUGS (5)
  1. DEXAMETHASONE SODIUM PHOSPHATE [Suspect]
     Indication: MULTIPLE MYELOMA
     Dosage: 40 MG DAYS 4-9, 9-12, 17-20 INJECTION NOS
  2. THALIDOMIDE [Concomitant]
  3. DARBEPOETIN-A [Concomitant]
  4. ZOLEDRONIC ACID [Concomitant]
  5. WARFARIN SODIUM [Concomitant]

REACTIONS (4)
  - HAEMODIALYSIS [None]
  - LIGHT CHAIN ANALYSIS DECREASED [None]
  - RENAL FAILURE ACUTE [None]
  - TUMOUR LYSIS SYNDROME [None]
